FAERS Safety Report 9162395 (Version 2)
Quarter: 2013Q2

REPORT INFORMATION
  Report Type: Spontaneous
  Country: US (occurrence: US)
  Receive Date: 20130314
  Receipt Date: 20130410
  Transmission Date: 20140414
  Serious: No
  Sender: FDA-Public Use
  Company Number: US-PFIZER INC-2013085929

PATIENT
  Age: 54 Year
  Sex: Male

DRUGS (1)
  1. MOTRIN IB [Suspect]
     Indication: PAIN
     Dosage: 800 MG ONCE A DAY
     Route: 048
     Dates: start: 20130101, end: 2013

REACTIONS (6)
  - Drug ineffective [Unknown]
  - Diarrhoea [Not Recovered/Not Resolved]
  - Hypersensitivity [Not Recovered/Not Resolved]
  - Dizziness [Not Recovered/Not Resolved]
  - Nausea [Not Recovered/Not Resolved]
  - Vomiting [Not Recovered/Not Resolved]
